FAERS Safety Report 5065195-8 (Version None)
Quarter: 2006Q3

REPORT INFORMATION
  Report Type: 
  Country: None (occurrence: None)
  Receive Date: 20060706
  Receipt Date: 20050729
  Transmission Date: 20061208
  Serious: Yes (Hospitalization)
  Sender: FDA-Public Use
  Company Number: WAES 0508USA00069

PATIENT
  Age: 74 Year
  Sex: Female

DRUGS (1)
  1. HYZAAR [Suspect]
     Indication: HYPERTENSION
     Dosage: 50-12.5 MG/DAILY/PO
     Route: 048

REACTIONS (1)
  - RENAL IMPAIRMENT [None]
